FAERS Safety Report 7960465-5 (Version None)
Quarter: 2011Q4

REPORT INFORMATION
  Report Type: 
  Country: None (occurrence: None)
  Receive Date: 20111206
  Receipt Date: 20111202
  Transmission Date: 20120403
  Serious: Yes (Hospitalization, Other)
  Sender: FDA-Public Use
  Company Number: CA-ABBOTT-10P-028-0679081-00

PATIENT
  Sex: Male
  Weight: 91 kg

DRUGS (3)
  1. METOPROLOL TARTRATE [Concomitant]
     Indication: CARDIOVASCULAR DISORDER
     Dosage: 25 MG DAILY
     Route: 048
  2. MAVIK [Suspect]
     Indication: ESSENTIAL HYPERTENSION
     Dosage: 2 MG DAILY
     Route: 048
     Dates: start: 20100601
  3. MAVIK [Suspect]
     Dosage: PRESCRIBED AT VISIT #2-1 MG DAILY
     Route: 048
     Dates: start: 20101008

REACTIONS (1)
  - CORONARY ARTERY OCCLUSION [None]
